FAERS Safety Report 17670440 (Version 1)
Quarter: 2020Q2

REPORT INFORMATION
  Report Type: Spontaneous
  Country: ES (occurrence: ES)
  Receive Date: 20200415
  Receipt Date: 20200415
  Transmission Date: 20200713
  Serious: Yes (Death)
  Sender: FDA-Public Use
  Company Number: ES-TEVA-2020-ES-1223401

PATIENT
  Age: 75 Year
  Sex: Male

DRUGS (7)
  1. HIDROXICLOROQUINA SULFATO (2143SU) [Interacting]
     Active Substance: HYDROXYCHLOROQUINE SULFATE
     Indication: CORONAVIRUS INFECTION
     Dosage: 200 MG
     Route: 048
     Dates: start: 20200322, end: 20200325
  2. LOPINAVIR+RITONAVIR [Interacting]
     Active Substance: LOPINAVIR\RITONAVIR
     Indication: CORONAVIRUS INFECTION
     Dosage: 4 DOSAGE FORMS DAILY;
     Route: 048
     Dates: start: 20200322, end: 20200323
  3. CEFTRIAXONA (501A) [Concomitant]
     Active Substance: CEFTRIAXONE
     Route: 065
     Dates: start: 20200322
  4. PREDNISONA (886A) [Concomitant]
     Active Substance: PREDNISONE
     Dosage: 20 MG
     Route: 048
     Dates: start: 20200322, end: 20200325
  5. LEVOFLOXACINO (2791A) [Suspect]
     Active Substance: LEVOFLOXACIN
     Route: 065
     Dates: start: 20200322
  6. AZITROMICINA (7019A) [Interacting]
     Active Substance: AZITHROMYCIN
     Indication: CORONAVIRUS INFECTION
     Dosage: 500 MG
     Route: 048
     Dates: start: 20200319, end: 20200324
  7. ENOXAPARINA SODICA (2482SO) [Concomitant]
     Active Substance: ENOXAPARIN SODIUM
     Dosage: 40 MG
     Route: 058
     Dates: start: 20200324, end: 20200325

REACTIONS (2)
  - Sudden death [Fatal]
  - Drug interaction [Unknown]

NARRATIVE: CASE EVENT DATE: 20200326
